FAERS Safety Report 16993386 (Version 1)
Quarter: 2019Q4

REPORT INFORMATION
  Report Type: Spontaneous
  Country: CN (occurrence: CN)
  Receive Date: 20191105
  Receipt Date: 20191105
  Transmission Date: 20200122
  Serious: Yes (Other)
  Sender: FDA-Public Use
  Company Number: CN-PFIZER INC-2019472339

PATIENT
  Age: 49 Year
  Sex: Female
  Weight: 38 kg

DRUGS (1)
  1. CRIZOTINIB [Suspect]
     Active Substance: CRIZOTINIB
     Indication: LUNG NEOPLASM MALIGNANT
     Dosage: 250 MG, 2X/DAY
     Route: 048
     Dates: start: 20190628, end: 20191029

REACTIONS (2)
  - Renal tubular injury [Unknown]
  - Proteinuria [Unknown]

NARRATIVE: CASE EVENT DATE: 20191028
